FAERS Safety Report 8586261-6 (Version None)
Quarter: 2012Q3

REPORT INFORMATION
  Report Type: 
  Country: None (occurrence: None)
  Receive Date: 20120810
  Receipt Date: 20120802
  Transmission Date: 20120928
  Serious: Yes (Other)
  Sender: FDA-Public Use
  Company Number: US-ROCHE-1096639

PATIENT
  Age: 60 Year
  Sex: Female
  Weight: 54.253 kg

DRUGS (7)
  1. HERCEPTIN [Suspect]
     Route: 042
     Dates: start: 20120615, end: 20120615
  2. HERCEPTIN [Suspect]
     Dates: start: 20120709
  3. PACLITAXEL [Suspect]
     Dosage: CYCLIC ON DAY 1,8 AND 15 (C1D8)
     Route: 042
     Dates: start: 20120615, end: 20120615
  4. HERCEPTIN [Suspect]
     Indication: BREAST CANCER METASTATIC
     Dosage: CYCLIC ON DAY 1,8,15 AND 24
     Route: 042
     Dates: start: 20120608, end: 20120608
  5. NERATINIB [Suspect]
     Dosage: C1D8
     Route: 048
     Dates: start: 20120615, end: 20120620
  6. PACLITAXEL [Suspect]
     Indication: BREAST CANCER METASTATIC
     Dosage: C1D1
     Route: 042
     Dates: start: 20120608, end: 20120608
  7. NERATINIB [Suspect]
     Indication: BREAST CANCER METASTATIC
     Dosage: C1D1
     Route: 048
     Dates: start: 20120608, end: 20120608

REACTIONS (3)
  - MUCOSAL INFLAMMATION [None]
  - HYPOKALAEMIA [None]
  - DEHYDRATION [None]
